FAERS Safety Report 4686881-5 (Version None)
Quarter: 2005Q2

REPORT INFORMATION
  Report Type: 
  Country: None (occurrence: None)
  Receive Date: 20050609
  Receipt Date: 20050218
  Transmission Date: 20051028
  Serious: Yes (Hospitalization, Disabling)
  Sender: FDA-Public Use
  Company Number: US-MERCK-0502USA02447

PATIENT
  Age: 69 Year
  Sex: Male

DRUGS (4)
  1. VIOXX [Suspect]
     Indication: OSTEOARTHRITIS
     Route: 048
     Dates: start: 20030429
  2. VIOXX [Suspect]
     Indication: ARTHRALGIA
     Route: 048
     Dates: start: 20030429
  3. ALLEGRA [Concomitant]
     Route: 065
  4. HYTRIN [Concomitant]
     Route: 065

REACTIONS (20)
  - ABDOMINAL PAIN LOWER [None]
  - ANAEMIA [None]
  - ANAEMIA POSTOPERATIVE [None]
  - BLOOD GLUCOSE INCREASED [None]
  - DIARRHOEA [None]
  - DUODENAL ULCER PERFORATION [None]
  - ELECTROCARDIOGRAM ST-T CHANGE [None]
  - FAT NECROSIS [None]
  - GASTRIC DISORDER [None]
  - HYPERKALAEMIA [None]
  - HYPOVENTILATION [None]
  - HYPOXIA [None]
  - MEDICATION ERROR [None]
  - PAIN [None]
  - PERITONITIS [None]
  - PNEUMONIA ASPIRATION [None]
  - SINUS TACHYCARDIA [None]
  - TENSION [None]
  - URINARY RETENTION POSTOPERATIVE [None]
  - WOUND DEHISCENCE [None]
